FAERS Safety Report 5134980-6 (Version None)
Quarter: 2006Q4

REPORT INFORMATION
  Report Type: 
  Country: None (occurrence: None)
  Receive Date: 20061025
  Receipt Date: 20061016
  Transmission Date: 20070319
  Serious: Yes (Hospitalization)
  Sender: FDA-Public Use
  Company Number: US-ABBOTT-06P-163-0346984-00

PATIENT
  Sex: Female

DRUGS (3)
  1. TARKA [Suspect]
     Indication: HYPERTENSION
  2. BENECAR [Concomitant]
     Indication: HYPERTENSION
  3. DIURETICS [Concomitant]
     Indication: DRUG USE FOR UNKNOWN INDICATION

REACTIONS (1)
  - RENAL FAILURE [None]
